FAERS Safety Report 7142463-7 (Version None)
Quarter: 2010Q4

REPORT INFORMATION
  Report Type: 
  Country: None (occurrence: None)
  Receive Date: 20101207
  Receipt Date: 20101130
  Transmission Date: 20110411
  Serious: Yes (Other)
  Sender: FDA-Public Use
  Company Number: US-PFIZER INC-2010101438

PATIENT
  Sex: Male

DRUGS (6)
  1. CHANTIX [Suspect]
     Indication: SMOKING CESSATION THERAPY
     Dosage: STARTER PACK (1MG AND 0.5 MG)
     Route: 048
     Dates: start: 20071015
  2. XANAX [Concomitant]
     Indication: ANXIETY
     Dosage: UNK
     Dates: start: 19950101
  3. XANAX [Concomitant]
     Indication: DEPRESSION
  4. LITHIUM [Concomitant]
     Indication: DEPRESSION
     Dosage: UNK
     Dates: start: 20070801
  5. HYDROCODONE [Concomitant]
     Indication: PAIN IN EXTREMITY
     Dosage: UNK
     Dates: start: 20070901, end: 20090101
  6. VERAPAMIL [Concomitant]
     Indication: BLOOD PRESSURE INCREASED
     Dosage: UNK
     Dates: start: 19940101

REACTIONS (6)
  - CONFUSIONAL STATE [None]
  - DELUSION [None]
  - DISTURBANCE IN ATTENTION [None]
  - HOSTILITY [None]
  - PARANOIA [None]
  - SUICIDE ATTEMPT [None]
